FAERS Safety Report 15164926 (Version 3)
Quarter: 2018Q3

REPORT INFORMATION
  Report Type: Other
  Country: US (occurrence: US)
  Receive Date: 20180719
  Receipt Date: 20180906
  Transmission Date: 20181010
  Serious: Yes (Other)
  Sender: FDA-Public Use
  Company Number: US-ACORDA-ACO_151988_2018

PATIENT
  Sex: Male

DRUGS (2)
  1. TECFIDERA [Concomitant]
     Active Substance: DIMETHYL FUMARATE
     Indication: MULTIPLE SCLEROSIS
     Dosage: UNK
     Route: 065
  2. AMPYRA [Suspect]
     Active Substance: DALFAMPRIDINE
     Indication: PRIMARY PROGRESSIVE MULTIPLE SCLEROSIS
     Dosage: 10 MG, Q 12 HRS
     Route: 048

REACTIONS (10)
  - Weight decreased [Unknown]
  - Social avoidant behaviour [Unknown]
  - Hot flush [Unknown]
  - Decreased interest [Unknown]
  - Sexual dysfunction [Unknown]
  - Contraindicated product administered [Unknown]
  - Seizure [Unknown]
  - Primary progressive multiple sclerosis [Unknown]
  - Back pain [Unknown]
  - Colonoscopy [Unknown]
